FAERS Safety Report 4827306-6 (Version None)
Quarter: 2005Q4

REPORT INFORMATION
  Report Type: 
  Country: None (occurrence: None)
  Receive Date: 20051014
  Receipt Date: 20050829
  Transmission Date: 20060501
  Serious: No
  Sender: FDA-Public Use
  Company Number: 2005SP002576

PATIENT
  Age: 25 Year
  Sex: Female
  Weight: 86.1834 kg

DRUGS (4)
  1. LUNESTA [Suspect]
     Dosage: 3 MG; HS; ORAL
     Route: 048
     Dates: start: 20050824, end: 20050830
  2. LISINOPRIL [Concomitant]
  3. ALBUTEROL [Concomitant]
  4. MICROGESTIN FE 1/20 [Concomitant]

REACTIONS (2)
  - DRUG INEFFECTIVE [None]
  - INSOMNIA [None]
